FAERS Safety Report 11577545 (Version 2)
Quarter: 2015Q4

REPORT INFORMATION
  Report Type: Spontaneous
  Country: US (occurrence: US)
  Receive Date: 20150930
  Receipt Date: 20151221
  Transmission Date: 20160304
  Serious: Yes (Hospitalization)
  Sender: FDA-Public Use
  Company Number: US-BAYER-2015-432454

PATIENT
  Age: 46 Year
  Sex: Female
  Weight: 79.37 kg

DRUGS (3)
  1. MIRENA [Suspect]
     Active Substance: LEVONORGESTREL
     Indication: CONTRACEPTION
     Dosage: 20 MCG/24HR, CONT
     Route: 015
     Dates: start: 20070807, end: 20090903
  2. LO LOESTRIN FE [Concomitant]
     Active Substance: ETHINYL ESTRADIOL\NORETHINDRONE ACETATE
  3. LISINOPRIL. [Concomitant]
     Active Substance: LISINOPRIL
     Indication: HYPERTENSION
     Dosage: UNK
     Dates: start: 2006, end: 2009

REACTIONS (10)
  - Genital haemorrhage [None]
  - Injury [None]
  - Emotional distress [None]
  - Vaginal haemorrhage [None]
  - Anxiety [None]
  - Pain [None]
  - Nausea [None]
  - Device dislocation [None]
  - Device failure [None]
  - Stress [None]

NARRATIVE: CASE EVENT DATE: 200909
